FAERS Safety Report 11771914 (Version 4)
Quarter: 2015Q4

REPORT INFORMATION
  Report Type: Spontaneous
  Country: PT (occurrence: PT)
  Receive Date: 20151124
  Receipt Date: 20151229
  Transmission Date: 20160304
  Serious: Yes (Life-Threatening, Other)
  Sender: FDA-Public Use
  Company Number: PT-ACTAVIS-2015-25590

PATIENT
  Age: 50 Year
  Sex: Female
  Weight: 97 kg

DRUGS (7)
  1. DOCETAXEL ACTAVIS [Suspect]
     Active Substance: DOCETAXEL
     Indication: BREAST CANCER
     Dosage: 100 MG/M2,1/ THREE WEEKS (ADR CYCLE NO.1: 30-OCT-2015 AND CYCLE NR.2 :20-NOV-2015)
     Route: 042
     Dates: start: 20151030, end: 20151030
  2. DOCETAXEL ACTAVIS [Suspect]
     Active Substance: DOCETAXEL
     Dosage: 100 MG/M2, 1/ THREE WEEKS, (ADR CYCLE NO.1: 30-OCT-2015 AND CYCLE NR.2 :20-NOV-2015)
     Route: 042
     Dates: start: 20151120, end: 20151120
  3. TRASTUZUMAB [Concomitant]
     Active Substance: TRASTUZUMAB
     Indication: BREAST CANCER
     Dosage: UNK, UNKNOWN (PART OF THE DOCETAXEL + TRASTUZUMAB PROTOCOL)
     Route: 058
     Dates: start: 20151030
  4. METILPREDNISOLONA                  /00049601/ [Concomitant]
     Indication: ALLERGY PROPHYLAXIS
     Dosage: 40 MG, DAILY, ( AS PREMEDICATION)
     Route: 042
     Dates: start: 20151030, end: 20151030
  5. DEXAMETASON                        /00016001/ [Concomitant]
     Indication: ALLERGY PROPHYLAXIS
     Dosage: 20 MG, DAILY (AS PART OF PRE-MEDICATION REGIMEN)
     Route: 042
     Dates: start: 20151120, end: 20151120
  6. DOCETAXEL ACTAVIS [Suspect]
     Active Substance: DOCETAXEL
     Dosage: UNK UNK, 1/ THREE WEEKS (NO 3 CICLO: 11-12-2015)
     Route: 042
  7. LEPICORTINOLO [Concomitant]
     Active Substance: PREDNISOLONE
     Indication: ALLERGY PROPHYLAXIS
     Dosage: 120 MG, 6 SEPARATE DOSAGES / 2 DAYS, (40MG IN THE EVENING AND 80 MG ON THE DAY OF TREATMENT)
     Route: 048
     Dates: start: 20151119, end: 20151120

REACTIONS (12)
  - Anaphylactic reaction [Recovered/Resolved]
  - Back pain [Recovered/Resolved]
  - Drug hypersensitivity [Recovered/Resolved]
  - Drug hypersensitivity [Recovered/Resolved]
  - Back pain [Recovered/Resolved]
  - Back pain [Recovered/Resolved]
  - Vomiting [Recovered/Resolved]
  - Nausea [Recovered/Resolved]
  - Headache [Recovered/Resolved]
  - Abdominal pain upper [Recovered/Resolved]
  - Respiratory distress [Recovered/Resolved]
  - Abdominal pain [Recovered/Resolved]

NARRATIVE: CASE EVENT DATE: 20151030
